FAERS Safety Report 9257793 (Version 1)
Quarter: 2013Q2

REPORT INFORMATION
  Report Type: Report from Study
  Country: FR (occurrence: FR)
  Receive Date: 20130426
  Receipt Date: 20130426
  Transmission Date: 20140414
  Serious: Yes (Hospitalization)
  Sender: FDA-Public Use
  Company Number: FR-SANOFI-AVENTIS-2013SA040887

PATIENT
  Age: 49 Year
  Sex: Female

DRUGS (3)
  1. DOCETAXEL [Suspect]
     Indication: SQUAMOUS CELL CARCINOMA OF HEAD AND NECK
     Route: 041
     Dates: start: 20130208, end: 20130208
  2. CISPLATIN [Suspect]
     Indication: SQUAMOUS CELL CARCINOMA OF HEAD AND NECK
     Route: 041
     Dates: start: 20130208, end: 20130208
  3. FLUOROURACIL [Suspect]
     Indication: SQUAMOUS CELL CARCINOMA OF HEAD AND NECK
     Route: 041
     Dates: start: 20130208, end: 20130208

REACTIONS (2)
  - Alcoholic pancreatitis [Recovered/Resolved]
  - Ketoacidosis [Recovered/Resolved]
